FAERS Safety Report 5980353-3 (Version None)
Quarter: 2008Q4

REPORT INFORMATION
  Report Type: 
  Country: None (occurrence: None)
  Receive Date: 20081202
  Receipt Date: 20081202
  Transmission Date: 20090506
  Serious: Yes (Other)
  Sender: FDA-Public Use
  Company Number: None

PATIENT
  Age: 77 Year
  Sex: Male
  Weight: 72.5755 kg

DRUGS (1)
  1. ISOSORBIDE MONONITRATE [Suspect]
     Indication: CARDIAC DISORDER
     Dosage: 60MG 1 PO
     Route: 048
     Dates: start: 20081101, end: 20081115

REACTIONS (4)
  - ASTHENIA [None]
  - FATIGUE [None]
  - HYPOTENSION [None]
  - PRODUCT QUALITY ISSUE [None]
